FAERS Safety Report 15551186 (Version 1)
Quarter: 2018Q4

REPORT INFORMATION
  Report Type: Spontaneous
  Country: US (occurrence: US)
  Receive Date: 20181025
  Receipt Date: 20181025
  Transmission Date: 20190205
  Serious: Yes (Disabling)
  Sender: FDA-Public Use
  Company Number: None

PATIENT
  Age: 66 Year
  Sex: Female

DRUGS (18)
  1. LISINOPRIL. [Concomitant]
     Active Substance: LISINOPRIL
  2. VENLAFAXINE ER [Concomitant]
     Active Substance: VENLAFAXINE HYDROCHLORIDE
  3. CLONAZEPAM. [Concomitant]
     Active Substance: CLONAZEPAM
  4. PANTOPRAZOLE [Concomitant]
     Active Substance: PANTOPRAZOLE
  5. CELEBREX [Concomitant]
     Active Substance: CELECOXIB
  6. VITAMIN D3 [Concomitant]
     Active Substance: CHOLECALCIFEROL
  7. DOCUSATE SODIUM. [Concomitant]
     Active Substance: DOCUSATE SODIUM
  8. BACLOFEN. [Concomitant]
     Active Substance: BACLOFEN
  9. ZOFRAN [Concomitant]
     Active Substance: ONDANSETRON HYDROCHLORIDE
  10. VITAMIN C [Concomitant]
     Active Substance: ASCORBIC ACID
  11. OXYBUTYNIN EXTENDED RELEASE TABLETS [Suspect]
     Active Substance: OXYBUTYNIN
     Indication: HYPERTONIC BLADDER
     Dosage: ?          QUANTITY:1 TABLET(S);?
     Route: 048
     Dates: start: 20180912
  12. LINZESS [Concomitant]
     Active Substance: LINACLOTIDE
  13. XANAX [Concomitant]
     Active Substance: ALPRAZOLAM
  14. COENZYME Q10 [Concomitant]
     Active Substance: UBIDECARENONE
  15. ASPIRIN. [Concomitant]
     Active Substance: ASPIRIN
  16. METOPROLOL ER [Concomitant]
     Active Substance: METOPROLOL SUCCINATE
  17. TRAMADOL. [Concomitant]
     Active Substance: TRAMADOL
  18. BIOTIN [Concomitant]
     Active Substance: BIOTIN

REACTIONS (3)
  - Drug ineffective [None]
  - Dyschezia [None]
  - Product residue present [None]

NARRATIVE: CASE EVENT DATE: 20181018
